FAERS Safety Report 19094632 (Version 1)
Quarter: 2021Q2

REPORT INFORMATION
  Report Type: Spontaneous
  Country: US (occurrence: US)
  Receive Date: 20210405
  Receipt Date: 20210405
  Transmission Date: 20210717
  Serious: No
  Sender: FDA-Public Use
  Company Number: US-009507513-2103USA007756

PATIENT
  Age: 62 Year
  Sex: Female

DRUGS (4)
  1. ZOLINZA [Suspect]
     Active Substance: VORINOSTAT
     Indication: INTRADUCTAL PROLIFERATIVE BREAST LESION
  2. TRASTUZUMAB. [Concomitant]
     Active Substance: TRASTUZUMAB
     Indication: INVASIVE DUCTAL BREAST CARCINOMA
     Dosage: 12 CYCLES
     Dates: start: 201207, end: 201210
  3. ZOLINZA [Suspect]
     Active Substance: VORINOSTAT
     Indication: CUTANEOUS T-CELL LYMPHOMA
     Dosage: 12 CYCLES, CYCLICAL
     Route: 048
     Dates: start: 201207, end: 201210
  4. PACLITAXEL. [Concomitant]
     Active Substance: PACLITAXEL
     Indication: INVASIVE DUCTAL BREAST CARCINOMA
     Dosage: 12 CYCLES
     Dates: start: 201207, end: 201210

REACTIONS (1)
  - Product use in unapproved indication [Unknown]
